FAERS Safety Report 7040539-6 (Version None)
Quarter: 2010Q4

REPORT INFORMATION
  Report Type: 
  Country: None (occurrence: None)
  Receive Date: 20101008
  Receipt Date: 20101008
  Transmission Date: 20110411
  Serious: Yes (Disabling, Other)
  Sender: FDA-Public Use
  Company Number: None

PATIENT
  Age: 82 Year
  Sex: Male
  Weight: 83.9154 kg

DRUGS (1)
  1. RAPAFLO [Suspect]
     Indication: URINARY RETENTION
     Dosage: 8 MG 1 PER DAY ORAL
     Route: 048
     Dates: start: 20100721, end: 20100825

REACTIONS (2)
  - NOCTURIA [None]
  - POOR QUALITY SLEEP [None]
